FAERS Safety Report 22856937 (Version 4)
Quarter: 2023Q4

REPORT INFORMATION
  Report Type: Spontaneous
  Country: US (occurrence: US)
  Receive Date: 20230823
  Receipt Date: 20231006
  Transmission Date: 20240110
  Serious: Yes (Hospitalization)
  Sender: FDA-Public Use
  Company Number: US-Stemline Therapeutics, Inc.-2023ST002123

PATIENT
  Age: 80 Year
  Sex: Female

DRUGS (2)
  1. ORSERDU [Suspect]
     Active Substance: ELACESTRANT
     Indication: Product used for unknown indication
     Route: 048
     Dates: start: 20230425
  2. ORSERDU [Suspect]
     Active Substance: ELACESTRANT
     Route: 048

REACTIONS (3)
  - Hospitalisation [Not Recovered/Not Resolved]
  - Pain management [Recovering/Resolving]
  - Hospice care [Unknown]

NARRATIVE: CASE EVENT DATE: 20230707
